FAERS Safety Report 22955133 (Version 4)
Quarter: 2023Q4

REPORT INFORMATION
  Report Type: Spontaneous
  Country: US (occurrence: US)
  Receive Date: 20230918
  Receipt Date: 20231109
  Transmission Date: 20240109
  Serious: Yes (Hospitalization, Other)
  Sender: FDA-Public Use
  Company Number: US-PFIZER INC-202300299268

PATIENT
  Age: 64 Year
  Sex: Female
  Weight: 97.52 kg

DRUGS (4)
  1. NURTEC ODT [Suspect]
     Active Substance: RIMEGEPANT SULFATE
     Indication: Migraine
     Dosage: 20 MG
  2. NURTEC ODT [Suspect]
     Active Substance: RIMEGEPANT SULFATE
     Dosage: 75 MG (75MG TABLET EVERY OTHER DAY BY MOUTH)
     Route: 048
  3. ZOLOFT [Suspect]
     Active Substance: SERTRALINE HYDROCHLORIDE
     Indication: Anxiety
     Dosage: 25 MG, DAILY
     Dates: start: 2023
  4. VALACYCLOVIR [Concomitant]
     Active Substance: VALACYCLOVIR HYDROCHLORIDE
     Indication: Herpes virus infection
     Dosage: 500 MG, AS NEEDED (500MG TABLET AS NEEDED BY MOUTH)
     Route: 048

REACTIONS (4)
  - Weight loss poor [Not Recovered/Not Resolved]
  - Overweight [Not Recovered/Not Resolved]
  - Arthropathy [Unknown]
  - Product use issue [Unknown]
